FAERS Safety Report 10633011 (Version 1)
Quarter: 2014Q4

REPORT INFORMATION
  Report Type: Spontaneous
  Country: US (occurrence: None)
  Receive Date: 20141121
  Receipt Date: 20141121
  Transmission Date: 20150529
  Serious: No
  Sender: FDA-Public Use
  Company Number: 163-10004-14080911

PATIENT
  Age: 48 Year
  Sex: Female
  Weight: 75.75 kg

DRUGS (2)
  1. OTEZLA [Suspect]
     Active Substance: APREMILAST
     Indication: PSORIATIC ARTHROPATHY
     Dosage: 60 MG, 2 IN 1 D, PO?06/06/2014 - TEMPORARILY INTERRUPTED
     Route: 048
     Dates: start: 20140606
  2. CYMBALTA [Concomitant]
     Active Substance: DULOXETINE HYDROCHLORIDE

REACTIONS (2)
  - Drug dose omission [None]
  - Headache [None]

NARRATIVE: CASE EVENT DATE: 2014
